FAERS Safety Report 8171019-2 (Version None)
Quarter: 2012Q1

REPORT INFORMATION
  Report Type: 
  Country: None (occurrence: None)
  Receive Date: 20120124
  Receipt Date: 20110914
  Transmission Date: 20120608
  Serious: No
  Sender: FDA-Public Use
  Company Number: 2011HGS-002542

PATIENT
  Age: 41 Year
  Sex: Female
  Weight: 169 kg

DRUGS (4)
  1. BENLYSTA [Suspect]
     Indication: SYSTEMIC LUPUS ERYTHEMATOSUS
     Dosage: 10 MG/KG, 1 IN 4 WK, INTRAVENOUS DRIP
     Route: 041
     Dates: start: 20110524
  2. PREDNISONE [Concomitant]
  3. PLAQUENIL (HYDROXYCHLOROQUINE SULFATE)(HYDROXYCHLOROQUINE SULFATE) [Concomitant]
  4. VITAMIN D (EROCALCIFEROL) (EROCALCIFEROL) [Concomitant]

REACTIONS (7)
  - INFUSION SITE PAIN [None]
  - MOTION SICKNESS [None]
  - APHASIA [None]
  - ABDOMINAL DISTENSION [None]
  - AMNESIA [None]
  - DIARRHOEA [None]
  - INFUSION SITE SWELLING [None]
